FAERS Safety Report 7603021-0 (Version None)
Quarter: 2011Q3

REPORT INFORMATION
  Report Type: 
  Country: None (occurrence: None)
  Receive Date: 20110712
  Receipt Date: 20110630
  Transmission Date: 20111222
  Serious: Yes (Life-Threatening, Hospitalization, Other)
  Sender: FDA-Public Use
  Company Number: US-ELI_LILLY_AND_COMPANY-US201009006315

PATIENT
  Sex: Female

DRUGS (15)
  1. METRONIDAZOLE [Concomitant]
     Dosage: 500 MG, 3/D
  2. METHYLPREDNISOLONE [Concomitant]
     Dosage: 4 MG, 4/D
  3. PERCOCET [Concomitant]
  4. METOPROLOL TARTRATE [Concomitant]
     Dosage: 25 MG, 2/D
  5. SIMVASTATIN [Concomitant]
     Dosage: 40 MG, EACH EVENING
  6. ASPIRIN [Concomitant]
     Dosage: UNK, DAILY (1/D)
  7. OXYGEN [Concomitant]
  8. CITALOPRAM HYDROBROMIDE [Concomitant]
     Dosage: 20 MG, DAILY (1/D)
  9. FORTEO [Suspect]
     Indication: OSTEOPOROSIS
     Dosage: 20 UG, DAILY (1/D)
     Route: 065
     Dates: end: 20101128
  10. PREDNISONE [Concomitant]
     Dosage: 10 MG, DAILY (1/D)
  11. METHYLPREDNISOLONE [Concomitant]
     Dosage: 4 MG, OTHER
  12. FORTEO [Suspect]
     Dosage: 20 UG, DAILY (1/D)
     Route: 065
     Dates: start: 20101207
  13. FORTEO [Suspect]
     Dosage: 20 UG, QD
     Route: 065
  14. LYRICA [Concomitant]
     Dosage: 150 MG, DAILY (1/D)
  15. NEXIUM [Concomitant]
     Dosage: 40 MG, 2/D

REACTIONS (12)
  - RESPIRATORY FAILURE [None]
  - LUNG INFECTION [None]
  - LOSS OF CONSCIOUSNESS [None]
  - CARBON MONOXIDE DIFFUSING CAPACITY DECREASED [None]
  - FATIGUE [None]
  - ASTHENIA [None]
  - FEELING ABNORMAL [None]
  - MYOCARDIAL INFARCTION [None]
  - MUSCLE TIGHTNESS [None]
  - DRUG DOSE OMISSION [None]
  - JOINT SWELLING [None]
  - FALL [None]
